FAERS Safety Report 21736432 (Version 3)
Quarter: 2023Q1

REPORT INFORMATION
  Report Type: Report from Study
  Country: US (occurrence: US)
  Receive Date: 20221215
  Receipt Date: 20230309
  Transmission Date: 20230418
  Serious: Yes (Hospitalization)
  Sender: FDA-Public Use
  Company Number: US-BIOGEN-2022BI01142759

PATIENT
  Age: 68 Year
  Sex: Female

DRUGS (5)
  1. VUMERITY [Suspect]
     Active Substance: DIROXIMEL FUMARATE
     Indication: Multiple sclerosis
     Route: 050
     Dates: start: 20220621
  2. VUMERITY [Suspect]
     Active Substance: DIROXIMEL FUMARATE
     Route: 050
     Dates: start: 20220715, end: 20220721
  3. VUMERITY [Suspect]
     Active Substance: DIROXIMEL FUMARATE
     Route: 050
     Dates: start: 20220722
  4. VUMERITY [Suspect]
     Active Substance: DIROXIMEL FUMARATE
     Route: 050
     Dates: start: 20220621
  5. ADVIL [Concomitant]
     Active Substance: IBUPROFEN
     Indication: Prophylaxis
     Route: 050

REACTIONS (8)
  - Cervical cord compression [Unknown]
  - Cholelithotomy [Recovered/Resolved]
  - Spinal osteoarthritis [Unknown]
  - Product dose omission in error [Unknown]
  - Dizziness [Unknown]
  - Blood glucose increased [Unknown]
  - Vomiting [Unknown]
  - Rhinorrhoea [Unknown]

NARRATIVE: CASE EVENT DATE: 20220722
